FAERS Safety Report 6236482-2 (Version None)
Quarter: 2009Q2

REPORT INFORMATION
  Report Type: 
  Country: None (occurrence: None)
  Receive Date: 20090619
  Receipt Date: 20090609
  Transmission Date: 20091009
  Serious: Yes (Other)
  Sender: FDA-Public Use
  Company Number: US-PFIZER INC-2009224752

PATIENT
  Sex: Female

DRUGS (7)
  1. NEURONTIN [Suspect]
  2. CYMBALTA [Concomitant]
  3. IMITREX [Concomitant]
  4. AMBIEN [Concomitant]
  5. VICODIN [Concomitant]
  6. THYROID [Concomitant]
  7. HYDROCORTISONE [Concomitant]

REACTIONS (7)
  - APHASIA [None]
  - COMA [None]
  - CONVULSION [None]
  - DELIRIUM [None]
  - DISTURBANCE IN ATTENTION [None]
  - RESPIRATORY ARREST [None]
  - SEROTONIN SYNDROME [None]
